FAERS Safety Report 11140353 (Version 1)
Quarter: 2015Q2

REPORT INFORMATION
  Report Type: Spontaneous
  Country: US (occurrence: US)
  Receive Date: 20150527
  Receipt Date: 20150527
  Transmission Date: 20150821
  Serious: Yes (Death)
  Sender: FDA-Public Use
  Company Number: US-JNJFOC-20150515466

PATIENT
  Age: 89 Year
  Sex: Male

DRUGS (6)
  1. PEPCID [Concomitant]
     Active Substance: FAMOTIDINE
     Route: 065
  2. ARICEPT [Concomitant]
     Active Substance: DONEPEZIL HYDROCHLORIDE
     Route: 065
  3. NAMENDA [Concomitant]
     Active Substance: MEMANTINE HYDROCHLORIDE
     Route: 065
  4. XARELTO [Suspect]
     Active Substance: RIVAROXABAN
     Indication: CEREBROVASCULAR ACCIDENT PROPHYLAXIS
     Route: 048
  5. CASODEX [Concomitant]
     Active Substance: BICALUTAMIDE
     Route: 065
  6. SIMVASTATIN. [Concomitant]
     Active Substance: SIMVASTATIN
     Route: 065

REACTIONS (2)
  - Death [Fatal]
  - Cerebrovascular accident [Unknown]
